FAERS Safety Report 25056400 (Version 2)
Quarter: 2025Q3

REPORT INFORMATION
  Report Type: Spontaneous
  Country: CN (occurrence: CN)
  Receive Date: 20250310
  Receipt Date: 20250803
  Transmission Date: 20251021
  Serious: Yes (Other)
  Sender: ALEXION PHARMACEUTICALS
  Company Number: CN-ASTRAZENECA-202503CHN000932CN

PATIENT
  Age: 50 Year
  Sex: Female

DRUGS (2)
  1. PULMICORT RESPULES [Suspect]
     Active Substance: BUDESONIDE
     Indication: Upper respiratory tract infection
     Dosage: 2 MILLILITER, QD
     Dates: start: 20250301, end: 20250302
  2. TERBUTALINE SULFATE [Suspect]
     Active Substance: TERBUTALINE SULFATE
     Indication: Upper respiratory tract infection
     Dosage: 2 MILLILITER, QD
     Dates: start: 20250301, end: 20250302

REACTIONS (6)
  - Diplegia [Unknown]
  - Quadriparesis [Unknown]
  - Asthenia [Recovered/Resolved]
  - Palpitations [Recovered/Resolved]
  - Tremor [Recovered/Resolved]
  - Hypoaesthesia [Recovered/Resolved]

NARRATIVE: CASE EVENT DATE: 20250301
